FAERS Safety Report 26019405 (Version 2)
Quarter: 2025Q4

REPORT INFORMATION
  Report Type: Spontaneous
  Country: US (occurrence: US)
  Receive Date: 20251110
  Receipt Date: 20251113
  Transmission Date: 20260118
  Serious: Yes (Life-Threatening, Hospitalization)
  Sender: DAIICHI
  Company Number: US-DSJP-DS-2025-175261-US

PATIENT
  Sex: Female

DRUGS (1)
  1. ENHERTU [Suspect]
     Active Substance: FAM-TRASTUZUMAB DERUXTECAN-NXKI
     Indication: Breast cancer
     Dosage: TOOK 1 DOSE
     Route: 065
     Dates: start: 20250818

REACTIONS (2)
  - Pericardial effusion [Unknown]
  - Pulmonary function test decreased [Unknown]
